FAERS Safety Report 5320259-6 (Version None)
Quarter: 2007Q2

REPORT INFORMATION
  Report Type: 
  Country: None (occurrence: None)
  Receive Date: 20070503
  Receipt Date: 20070503
  Transmission Date: 20071010
  Serious: Yes (Life-Threatening, Disabling, Other)
  Sender: FDA-Public Use
  Company Number: None

PATIENT
  Age: 17 Year
  Sex: Male
  Weight: 72.5755 kg

DRUGS (2)
  1. DILANTIN [Suspect]
     Indication: CONVULSION
     Dosage: 100 MG? 5 OR 6 PO
     Route: 048
     Dates: start: 19821101, end: 19830101
  2. DILANTIN [Suspect]
     Indication: HEAD INJURY
     Dosage: 100 MG? 5 OR 6 PO
     Route: 048
     Dates: start: 19821101, end: 19830101

REACTIONS (5)
  - AMNESIA [None]
  - ILL-DEFINED DISORDER [None]
  - PHARMACEUTICAL PRODUCT COMPLAINT [None]
  - SLEEP DISORDER [None]
  - SUICIDAL BEHAVIOUR [None]
